FAERS Safety Report 25245283 (Version 3)
Quarter: 2025Q3

REPORT INFORMATION
  Report Type: Report from Study
  Country: JP (occurrence: JP)
  Receive Date: 20250428
  Receipt Date: 20250915
  Transmission Date: 20251021
  Serious: Yes (Hospitalization)
  Sender: EISAI
  Company Number: JP-Eisai-202500967_LEN-EC_P_1

PATIENT
  Age: 50 Year
  Sex: Female
  Weight: 74 kg

DRUGS (4)
  1. LENVIMA [Suspect]
     Active Substance: LENVATINIB
     Indication: Endometrial cancer
     Route: 048
     Dates: start: 20230823, end: 20230906
  2. LENVIMA [Suspect]
     Active Substance: LENVATINIB
     Route: 048
     Dates: start: 20230921, end: 20230926
  3. LENVIMA [Suspect]
     Active Substance: LENVATINIB
     Route: 048
     Dates: start: 20231005, end: 20231010
  4. KEYTRUDA [Suspect]
     Active Substance: PEMBROLIZUMAB
     Indication: Endometrial cancer
     Route: 042
     Dates: start: 20230823, end: 2023

REACTIONS (2)
  - Cholecystitis acute [Recovering/Resolving]
  - Infected neoplasm [Recovering/Resolving]

NARRATIVE: CASE EVENT DATE: 20230906
